FAERS Safety Report 23630984 (Version 1)
Quarter: 2024Q1

REPORT INFORMATION
  Report Type: Report from Study
  Country: CO (occurrence: CO)
  Receive Date: 20240314
  Receipt Date: 20240314
  Transmission Date: 20240409
  Serious: Yes (Other)
  Sender: FDA-Public Use
  Company Number: CO-ASTELLAS-2024US007562

PATIENT
  Age: 68 Year
  Sex: Male

DRUGS (1)
  1. TACROLIMUS [Suspect]
     Active Substance: TACROLIMUS
     Indication: Liver transplant
     Dosage: 0.5 MG, ONCE DAILY
     Route: 048

REACTIONS (3)
  - Cardiomegaly [Unknown]
  - Renal failure [Unknown]
  - Mental disorder [Unknown]
